FAERS Safety Report 8541090-4 (Version None)
Quarter: 2012Q3

REPORT INFORMATION
  Report Type: 
  Country: None (occurrence: None)
  Receive Date: 20120726
  Receipt Date: 20110817
  Transmission Date: 20120928
  Serious: No
  Sender: FDA-Public Use
  Company Number: US-ASTRAZENECA-2011SE49474

PATIENT
  Age: 44 Year
  Sex: Female
  Weight: 69.4 kg

DRUGS (5)
  1. ELAVIL [Concomitant]
  2. SEROQUEL XR [Suspect]
     Indication: BIPOLAR DISORDER
     Route: 048
     Dates: start: 20110501
  3. HAZIDONE [Concomitant]
  4. DIAZEPAM [Concomitant]
  5. GABAPENTIN [Concomitant]

REACTIONS (3)
  - JOINT SWELLING [None]
  - FALL [None]
  - JOINT INJURY [None]
